FAERS Safety Report 7324316-4 (Version None)
Quarter: 2011Q1

REPORT INFORMATION
  Report Type: 
  Country: None (occurrence: None)
  Receive Date: 20110202
  Receipt Date: 20101110
  Transmission Date: 20110831
  Serious: No
  Sender: FDA-Public Use
  Company Number: 2010-14782

PATIENT
  Age: 64 Year
  Sex: Male
  Weight: 63.5 kg

DRUGS (4)
  1. RAPAFLO [Suspect]
     Indication: PROSTATOMEGALY
     Dosage: 8 MG, DAILY, ORAL
     Route: 048
     Dates: start: 20101109
  2. RITALIN (METHYLPHENIDATE HYDROCHLOLRIDE) [Concomitant]
  3. PREVACID [Concomitant]
  4. COLACE (DOCUSATE SODIUM) [Concomitant]

REACTIONS (1)
  - NASAL CONGESTION [None]
